FAERS Safety Report 4606366-1 (Version None)
Quarter: 2005Q2

REPORT INFORMATION
  Report Type: 
  Country: None (occurrence: None)
  Receive Date: 20050223
  Receipt Date: 20041112
  Transmission Date: 20051028
  Serious: Yes (Disabling)
  Sender: FDA-Public Use
  Company Number: WAES   0411USA02363

PATIENT
  Age: 82 Year
  Sex: Male

DRUGS (15)
  1. ZOCOR [Suspect]
     Indication: HYPERCHOLESTEROLAEMIA
     Dosage: 40 MG/DAILY/PO
     Route: 048
  2. METFORMIN HCL [Suspect]
  3. BUMEX [Concomitant]
  4. DARVOCET-N 100 [Concomitant]
  5. NITRO [Concomitant]
  6. PROSCAR [Concomitant]
  7. STARLIX [Concomitant]
  8. SYNTHROID [Concomitant]
  9. TOPROL-XL [Concomitant]
  10. ALBUTEROL [Concomitant]
  11. ALLOPURINOL [Concomitant]
  12. COLCHICINE [Concomitant]
  13. LEVOTHYROXINE SODIUM [Concomitant]
  14. POTASSIUM (UNSPECIFIED) [Concomitant]
  15. RANITIDINE [Concomitant]

REACTIONS (1)
  - MYALGIA [None]
